FAERS Safety Report 5882453-5 (Version None)
Quarter: 2008Q3

REPORT INFORMATION
  Report Type: 
  Country: None (occurrence: None)
  Receive Date: 20080913
  Receipt Date: 20080806
  Transmission Date: 20090109
  Serious: No
  Sender: FDA-Public Use
  Company Number: US-ABBOTT-08P-163-0469130-00

PATIENT
  Sex: Female
  Weight: 83.99 kg

DRUGS (6)
  1. HUMIRA [Suspect]
     Indication: PSORIATIC ARTHROPATHY
     Dosage: LOADING DOSE
     Route: 058
     Dates: start: 20080522, end: 20080522
  2. HUMIRA [Suspect]
     Indication: PSORIASIS
     Route: 058
     Dates: start: 20080529, end: 20080529
  3. HUMIRA [Suspect]
     Route: 058
  4. DIOVAN HCT [Concomitant]
     Indication: BLOOD PRESSURE
  5. DYAZIDE [Concomitant]
     Indication: BLOOD PRESSURE
     Dosage: 75/150MG - 1/2 TABLET DAILY
     Route: 048
  6. AMLODIPINE [Concomitant]
     Indication: BLOOD PRESSURE
     Route: 048

REACTIONS (1)
  - URINARY TRACT INFECTION [None]
